FAERS Safety Report 8456512-7 (Version None)
Quarter: 2012Q2

REPORT INFORMATION
  Report Type: 
  Country: None (occurrence: None)
  Receive Date: 20120621
  Receipt Date: 20120615
  Transmission Date: 20120825
  Serious: Yes (Other)
  Sender: FDA-Public Use
  Company Number: US-US-EMD SERONO, INC.-7024248

PATIENT
  Sex: Female
  Weight: 100 kg

DRUGS (11)
  1. CYTOXAN [Concomitant]
     Route: 040
     Dates: start: 20080303
  2. NOVANTRONE [Suspect]
     Indication: RENAL CANCER
     Route: 042
     Dates: start: 20080804
  3. FLUDARABINE PHOSPHATE [Suspect]
     Route: 040
     Dates: start: 20080804
  4. DECADRON [Concomitant]
     Indication: PRODUCT USED FOR UNKNOWN INDICATION
     Route: 040
     Dates: start: 20040518, end: 20080805
  5. CYTOXAN [Concomitant]
     Route: 040
     Dates: start: 20080211
  6. NOVANTRONE [Suspect]
     Indication: LYMPHOMA
     Route: 040
     Dates: start: 20080707
  7. ANZEMET [Concomitant]
     Indication: PRODUCT USED FOR UNKNOWN INDICATION
     Route: 040
     Dates: start: 20040518, end: 20080805
  8. CYTOXAN [Concomitant]
     Indication: LYMPHOCYTIC LYMPHOMA
     Route: 040
     Dates: start: 20040518
  9. FLUDARABINE PHOSPHATE [Suspect]
     Indication: LYMPHOCYTIC LYMPHOMA
     Route: 040
     Dates: start: 20080707, end: 20080710
  10. FLUDARABINE PHOSPHATE [Suspect]
     Indication: LYMPHOMA
     Route: 040
     Dates: start: 20040518, end: 20040519
  11. VINCRISTINE [Concomitant]
     Indication: LYMPHOCYTIC LYMPHOMA
     Route: 040
     Dates: start: 20080211, end: 20080324

REACTIONS (4)
  - THROMBOCYTOPENIA [None]
  - WHITE BLOOD CELL COUNT DECREASED [None]
  - HAEMOGLOBIN DECREASED [None]
  - NEUTROPENIA [None]
